FAERS Safety Report 21311833 (Version 1)
Quarter: 2022Q3

REPORT INFORMATION
  Report Type: Spontaneous
  Country: US (occurrence: None)
  Receive Date: 20220909
  Receipt Date: 20220909
  Transmission Date: 20221026
  Serious: No
  Sender: FDA-Public Use
  Company Number: US-FARMAPROD-202203-0496

PATIENT
  Age: 85 Year
  Sex: Female

DRUGS (8)
  1. OXERVATE [Suspect]
     Active Substance: CENEGERMIN-BKBJ
     Indication: Neurotrophic keratopathy
     Route: 047
     Dates: start: 20220315
  2. GABAPENTIN [Concomitant]
     Active Substance: GABAPENTIN
  3. COMBIGAN [Concomitant]
     Active Substance: BRIMONIDINE TARTRATE\TIMOLOL MALEATE
     Dosage: 0.2%-0.5%
  4. AZOPT [Concomitant]
     Active Substance: BRINZOLAMIDE
  5. GEMFIBROZIL [Concomitant]
     Active Substance: GEMFIBROZIL
  6. ELIQUIS [Concomitant]
     Active Substance: APIXABAN
  7. CLOPIDOGREL [Concomitant]
     Active Substance: CLOPIDOGREL BISULFATE
  8. AMLODIPINE BESYLATE [Concomitant]
     Active Substance: AMLODIPINE BESYLATE

REACTIONS (5)
  - Periorbital pain [Unknown]
  - Eye pain [Unknown]
  - Ocular hyperaemia [Unknown]
  - Lacrimation increased [Unknown]
  - Eye swelling [Unknown]

NARRATIVE: CASE EVENT DATE: 20220301
